FAERS Safety Report 7240952-8 (Version None)
Quarter: 2011Q1

REPORT INFORMATION
  Report Type: 
  Country: None (occurrence: None)
  Receive Date: 20110124
  Receipt Date: 20110119
  Transmission Date: 20110831
  Serious: Yes (Death, Hospitalization, Other)
  Sender: FDA-Public Use
  Company Number: PHEH2006US10316

PATIENT
  Sex: Male
  Weight: 14 kg

DRUGS (4)
  1. REGAAN [Concomitant]
     Indication: LUNG DISORDER
  2. XOPENEX [Concomitant]
     Indication: LUNG DISORDER
  3. PULMICORT [Concomitant]
     Indication: LUNG DISORDER
  4. EXJADE [Suspect]
     Indication: CONGENITAL APLASTIC ANAEMIA
     Dosage: 375 MG, QD
     Route: 048
     Dates: start: 20060707, end: 20060709

REACTIONS (21)
  - WHITE BLOOD CELL COUNT INCREASED [None]
  - BLOOD UREA INCREASED [None]
  - RED BLOOD CELL COUNT DECREASED [None]
  - SEPSIS [None]
  - ATELECTASIS [None]
  - BLOOD AMYLASE INCREASED [None]
  - CHOLELITHIASIS [None]
  - BLOOD CREATININE DECREASED [None]
  - HAEMATOCRIT DECREASED [None]
  - LIPASE INCREASED [None]
  - OXYGEN CONSUMPTION INCREASED [None]
  - FEEDING DISORDER [None]
  - BLOOD SODIUM INCREASED [None]
  - BLOOD GLUCOSE INCREASED [None]
  - PANCREATITIS [None]
  - RESPIRATORY TRACT INFECTION [None]
  - PLATELET COUNT INCREASED [None]
  - PNEUMONIA [None]
  - PYREXIA [None]
  - ASPARTATE AMINOTRANSFERASE INCREASED [None]
  - ALANINE AMINOTRANSFERASE INCREASED [None]
